FAERS Safety Report 19709135 (Version 1)
Quarter: 2021Q3

REPORT INFORMATION
  Report Type: Spontaneous
  Country: US (occurrence: US)
  Receive Date: 20210817
  Receipt Date: 20210817
  Transmission Date: 20211014
  Serious: Yes (Other)
  Sender: FDA-Public Use
  Company Number: US-PFIZER INC-202101013241

PATIENT
  Age: 63 Year
  Sex: Male
  Weight: 110.52 kg

DRUGS (1)
  1. XELJANZ [Suspect]
     Active Substance: TOFACITINIB CITRATE
     Indication: ILLNESS
     Dosage: 5 MG, 2X/DAY
     Route: 048

REACTIONS (2)
  - Renal impairment [Unknown]
  - Dehydration [Unknown]
